FAERS Safety Report 11746686 (Version 1)
Quarter: 2015Q4

REPORT INFORMATION
  Report Type: Report from Study
  Country: US (occurrence: US)
  Receive Date: 20151117
  Receipt Date: 20151117
  Transmission Date: 20160304
  Serious: Yes (Hospitalization, Other)
  Sender: FDA-Public Use
  Company Number: US-MALLINCKRODT-T201505148

PATIENT
  Age: 65 Year
  Sex: Female
  Weight: 59 kg

DRUGS (2)
  1. REPOSITORY CORTICOTROPIN INJECTION [Suspect]
     Active Substance: CORTICOTROPIN
     Indication: RHEUMATOID ARTHRITIS
     Dosage: UNK DOSE, ONCE WKLY
     Route: 030
     Dates: start: 2013, end: 201501
  2. AUBAGIO [Concomitant]
     Active Substance: TERIFLUNOMIDE

REACTIONS (3)
  - Impaired healing [Recovered/Resolved]
  - Rheumatoid arthritis [None]
  - Post procedural infection [Recovered/Resolved]

NARRATIVE: CASE EVENT DATE: 201501
